FAERS Safety Report 7304173-2 (Version None)
Quarter: 2011Q1

REPORT INFORMATION
  Report Type: 
  Country: None (occurrence: None)
  Receive Date: 20110221
  Receipt Date: 20110207
  Transmission Date: 20110831
  Serious: Yes (Hospitalization)
  Sender: FDA-Public Use
  Company Number: US-BAYER-2010-003207

PATIENT
  Sex: Female
  Weight: 51 kg

DRUGS (2)
  1. YAZ [Suspect]
     Indication: CONTRACEPTION
     Dosage: UNK
     Dates: start: 20040101, end: 20060501
  2. YAZ [Suspect]
     Dosage: UNK

REACTIONS (9)
  - NAUSEA [None]
  - GALLBLADDER DISORDER [None]
  - ABDOMINAL PAIN UPPER [None]
  - DYSPEPSIA [None]
  - PALPITATIONS [None]
  - DECREASED APPETITE [None]
  - DIARRHOEA [None]
  - ABDOMINAL DISCOMFORT [None]
  - BILIARY DYSKINESIA [None]
